FAERS Safety Report 8421556-8 (Version None)
Quarter: 2012Q2

REPORT INFORMATION
  Report Type: 
  Country: None (occurrence: None)
  Receive Date: 20120605
  Receipt Date: 20120605
  Transmission Date: 20120825
  Serious: Yes (Other)
  Sender: FDA-Public Use
  Company Number: None

PATIENT
  Sex: Male
  Weight: 96.6162 kg

DRUGS (1)
  1. FENTANYL-100 [Suspect]
     Indication: PAIN
     Dosage: 50 MCG/HR 1 EVERY 3 DAYS PATCH
     Route: 062
     Dates: start: 20120501, end: 20120516

REACTIONS (3)
  - APPLICATION SITE SWELLING [None]
  - APPLICATION SITE VESICLES [None]
  - APPLICATION SITE RASH [None]
